FAERS Safety Report 6528951-2 (Version None)
Quarter: 2009Q4

REPORT INFORMATION
  Report Type: 
  Country: None (occurrence: None)
  Receive Date: 20091224
  Receipt Date: 20091218
  Transmission Date: 20100525
  Serious: Yes (Other)
  Sender: FDA-Public Use
  Company Number: DSM-2009-02009

PATIENT
  Age: 56 Year
  Sex: Male

DRUGS (2)
  1. VOTUM PLUS(HYDROCHLOROTHIAZIDE, OLMESARTAN MEDOXOMIL) (HYDROCHLOROTHIA [Suspect]
     Indication: DRUG USE FOR UNKNOWN INDICATION
     Dosage: 20/12.5MG,ORAL
     Route: 048
     Dates: start: 20091214
  2. SORTIS(ATORVASTATIN CALCIUM) (10 MILLIGRAM, TABLET) (ATORVASTATIN CALC [Concomitant]

REACTIONS (2)
  - AGEUSIA [None]
  - ANOSMIA [None]
